FAERS Safety Report 11775299 (Version 1)
Quarter: 2015Q4

REPORT INFORMATION
  Report Type: Other
  Country: GB (occurrence: GB)
  Receive Date: 20151125
  Receipt Date: 20151125
  Transmission Date: 20160304
  Serious: Yes (Hospitalization)
  Sender: FDA-Public Use
  Company Number: GB-MYLANLABS-2015M1040449

PATIENT

DRUGS (2)
  1. TETRALYSAL                         /00001701/ [Suspect]
     Active Substance: LYMECYCLINE
     Dosage: UNK
     Dates: start: 201301
  2. CLARITHROMYCIN. [Suspect]
     Active Substance: CLARITHROMYCIN
     Dosage: UNK
     Dates: start: 201302

REACTIONS (4)
  - Thrombosis [Recovered/Resolved]
  - Visual impairment [Recovered/Resolved]
  - Intracranial pressure increased [Recovered/Resolved]
  - Headache [Recovered/Resolved]

NARRATIVE: CASE EVENT DATE: 201302
